FAERS Safety Report 5241540-5 (Version None)
Quarter: 2007Q1

REPORT INFORMATION
  Report Type: 
  Country: None (occurrence: None)
  Receive Date: 20070220
  Receipt Date: 20070219
  Transmission Date: 20070707
  Serious: Yes (Hospitalization)
  Sender: FDA-Public Use
  Company Number: FR-GLAXOSMITHKLINE-B0458868A

PATIENT
  Age: 74 Year
  Sex: Female
  Weight: 56 kg

DRUGS (3)
  1. CLAMOXYL [Suspect]
     Route: 048
     Dates: start: 20070111, end: 20070117
  2. FLUDEX [Concomitant]
     Indication: ESSENTIAL HYPERTENSION
     Route: 048
  3. VASTAREL [Concomitant]
     Dosage: 20MG TWICE PER DAY
     Route: 048

REACTIONS (6)
  - HYPERTHERMIA [None]
  - PRURITUS [None]
  - RASH ERYTHEMATOUS [None]
  - RASH PAPULAR [None]
  - SCRATCH [None]
  - URTICARIA [None]
